FAERS Safety Report 4514341-0 (Version None)
Quarter: 2004Q4

REPORT INFORMATION
  Report Type: 
  Country: None (occurrence: None)
  Receive Date: 20041130
  Receipt Date: 20041124
  Transmission Date: 20050328
  Serious: Yes (Hospitalization)
  Sender: FDA-Public Use
  Company Number: EE-MERCK-0411HUN00020

PATIENT
  Age: 23 Year
  Sex: Female
  Weight: 76 kg

DRUGS (5)
  1. INVANZ [Suspect]
     Indication: ENDOMETRITIS
     Route: 041
     Dates: start: 20041103, end: 20041105
  2. SULTAMICILLIN [Concomitant]
     Indication: ENDOMETRITIS
     Route: 042
     Dates: start: 20041028, end: 20041103
  3. CILASTATIN SODIUM AND IMIPENEM [Concomitant]
     Indication: ENDOMETRITIS
     Route: 042
     Dates: start: 20041105, end: 20041109
  4. KETOCONAZOLE [Concomitant]
     Indication: INFECTION PROPHYLAXIS
     Route: 048
     Dates: start: 20041103, end: 20041110
  5. FERROUS ASPARTATE [Concomitant]
     Indication: ANAEMIA
     Route: 048
     Dates: start: 20041101, end: 20041110

REACTIONS (1)
  - DERMATITIS ALLERGIC [None]
